FAERS Safety Report 20529748 (Version 1)
Quarter: 2022Q1

REPORT INFORMATION
  Report Type: Spontaneous
  Country: US (occurrence: US)
  Receive Date: 20220301
  Receipt Date: 20220301
  Transmission Date: 20220424
  Serious: No
  Sender: FDA-Public Use
  Company Number: US-SUN PHARMACEUTICAL INDUSTRIES LTD-2021R1-320104

PATIENT
  Sex: Female

DRUGS (2)
  1. MEDROXYPROGESTERONE [Suspect]
     Active Substance: MEDROXYPROGESTERONE
     Indication: Menstrual disorder
     Dosage: 150 MILLIGRAM, EVERY 11 TO 13 WEEKS
     Route: 030
  2. MEDROXYPROGESTERONE [Suspect]
     Active Substance: MEDROXYPROGESTERONE
     Indication: Contraception

REACTIONS (5)
  - Abdominal distension [Unknown]
  - Muscle spasms [Unknown]
  - Abdominal pain upper [Unknown]
  - Intermenstrual bleeding [Unknown]
  - Inappropriate schedule of product administration [Unknown]
